FAERS Safety Report 4749570-4 (Version None)
Quarter: 2005Q3

REPORT INFORMATION
  Report Type: 
  Country: None (occurrence: None)
  Receive Date: 20050822
  Receipt Date: 20041203
  Transmission Date: 20060218
  Serious: Yes (Hospitalization)
  Sender: FDA-Public Use
  Company Number: GB-GLAXOSMITHKLINE-B0360629A

PATIENT
  Sex: Female

DRUGS (6)
  1. PAROXETINE HYDROCHLORIDE [Suspect]
     Route: 065
  2. CODEINE [Suspect]
     Dosage: 71TAB PER DAY
  3. NITRAZEPAM [Suspect]
     Dosage: 10TAB PER DAY
  4. PARACETAMOL [Suspect]
     Dosage: 4TAB PER DAY
  5. ZOLPIDEM [Concomitant]
     Route: 065
  6. CO-PROXAMOL [Concomitant]
     Route: 065

REACTIONS (12)
  - ANGER [None]
  - ANXIETY [None]
  - CRYING [None]
  - DECREASED APPETITE [None]
  - DEPRESSED MOOD [None]
  - DISTURBANCE IN ATTENTION [None]
  - DRUG WITHDRAWAL SYNDROME [None]
  - MEMORY IMPAIRMENT [None]
  - OVERDOSE [None]
  - SLEEP DISORDER [None]
  - SUICIDAL IDEATION [None]
  - SUICIDE ATTEMPT [None]
